FAERS Safety Report 7781986-4 (Version None)
Quarter: 2011Q3

REPORT INFORMATION
  Report Type: 
  Country: None (occurrence: None)
  Receive Date: 20110927
  Receipt Date: 20110920
  Transmission Date: 20111222
  Serious: Yes (Death, Other)
  Sender: FDA-Public Use
  Company Number: PHHY2011VN85178

PATIENT
  Sex: Male

DRUGS (3)
  1. GLEEVEC [Suspect]
     Indication: GASTROINTESTINAL STROMAL TUMOUR
     Dosage: 400 MG, PER DAY
     Route: 048
     Dates: start: 20080701, end: 20100101
  2. GLEEVEC [Suspect]
     Dosage: 400 MG, PER DAY
     Route: 048
     Dates: start: 20110601, end: 20110701
  3. DURAGESIC-100 [Concomitant]
     Indication: PAIN
     Dosage: 50 UG/72 HR

REACTIONS (8)
  - URINARY TRACT DISORDER [None]
  - BLOOD CREATININE INCREASED [None]
  - RENAL FAILURE [None]
  - NEOPLASM MALIGNANT [None]
  - METASTASES TO ABDOMINAL WALL [None]
  - METASTASES TO GASTROINTESTINAL TRACT [None]
  - INTESTINAL OBSTRUCTION [None]
  - COMA [None]
